FAERS Safety Report 6526674-7 (Version None)
Quarter: 2009Q4

REPORT INFORMATION
  Report Type: 
  Country: None (occurrence: None)
  Receive Date: 20091230
  Receipt Date: 20091123
  Transmission Date: 20100525
  Serious: Yes (Death)
  Sender: FDA-Public Use
  Company Number: HA09-098-AE

PATIENT
  Age: 66 Year
  Sex: Male
  Weight: 181 kg

DRUGS (19)
  1. CELECOXIB [Suspect]
     Indication: ARTHRITIS
     Dosage: 375MG 2X/DAY ORALLY
     Route: 048
     Dates: start: 20070509, end: 20080106
  2. CELECOXIB [Suspect]
     Indication: ARTHRITIS
     Dosage: 500MG 2X/DAY ORALLY
     Route: 048
     Dates: start: 20080107
  3. NEXIUM [Concomitant]
  4. METFORMIN [Concomitant]
  5. HYDROCODONE [Concomitant]
  6. POTASSIUM [Concomitant]
  7. VITAMIN B-12 [Concomitant]
  8. ATORVASTATIN [Concomitant]
  9. ERYTHROMYCIN [Concomitant]
  10. CYCLOBENZAPRINE [Concomitant]
  11. LEVOTHYROXINE SODIUM [Concomitant]
  12. SAW PALMETTO (SERENOA REPENS) [Concomitant]
  13. LOPERAMIDE HCL [Concomitant]
  14. LOPERAMIDE (IMODIUM) [Concomitant]
  15. TAMSULOSIN HCL [Concomitant]
  16. MAGNESIUM [Concomitant]
  17. SALBUTAMOL SULFATE [Concomitant]
  18. CALCIUM [Concomitant]
  19. DUTASTERIDE [Concomitant]

REACTIONS (1)
  - DEATH [None]
